FAERS Safety Report 6415059-X (Version None)
Quarter: 2009Q4

REPORT INFORMATION
  Report Type: 
  Country: None (occurrence: None)
  Receive Date: 20091021
  Receipt Date: 20091014
  Transmission Date: 20100525
  Serious: Yes (Death, Life-Threatening, Hospitalization, Disabling, Other)
  Sender: FDA-Public Use
  Company Number: 2009-3824

PATIENT
  Age: 85 Year
  Sex: Male
  Weight: 68.2 kg

DRUGS (1)
  1. APOKYN [Suspect]
     Indication: PARKINSON'S DISEASE
     Dosage: 0.4ML FOUR TIMES PER DAY (0.4 ML, AS REQUIRED), SUBCUTANEOUS
     Route: 058
     Dates: start: 20090504, end: 20090609

REACTIONS (11)
  - CARDIO-RESPIRATORY ARREST [None]
  - CELLULITIS [None]
  - ERYTHEMA [None]
  - EXCORIATION [None]
  - HIATUS HERNIA [None]
  - HILAR LYMPHADENOPATHY [None]
  - INFECTION [None]
  - PNEUMONIA ASPIRATION [None]
  - RASH [None]
  - SYNCOPE [None]
  - TRANSIENT ISCHAEMIC ATTACK [None]
